FAERS Safety Report 5769722-4 (Version None)
Quarter: 2008Q2

REPORT INFORMATION
  Report Type: 
  Country: None (occurrence: None)
  Receive Date: 20080612
  Receipt Date: 20080408
  Transmission Date: 20081010
  Serious: No
  Sender: FDA-Public Use
  Company Number: US-ABBOTT-08P-163-0445723-00

PATIENT
  Sex: Female
  Weight: 43.584 kg

DRUGS (4)
  1. HUMIRA [Suspect]
     Indication: CROHN'S DISEASE
     Route: 058
     Dates: end: 20080408
  2. HUMIRA [Suspect]
     Route: 058
     Dates: start: 20080220, end: 20080220
  3. HUMIRA [Suspect]
     Route: 058
     Dates: start: 20080408
  4. PREDNISONE TAB [Concomitant]
     Indication: CROHN'S DISEASE
     Route: 048
     Dates: start: 20070101

REACTIONS (2)
  - ARTHRALGIA [None]
  - DIARRHOEA [None]
